FAERS Safety Report 8142916-9 (Version None)
Quarter: 2012Q1

REPORT INFORMATION
  Report Type: 
  Country: None (occurrence: None)
  Receive Date: 20120217
  Receipt Date: 20120207
  Transmission Date: 20120608
  Serious: Yes (Hospitalization)
  Sender: FDA-Public Use
  Company Number: DE-BIOGENIDEC-2012BI004032

PATIENT
  Age: 42 Year
  Sex: Male
  Weight: 91 kg

DRUGS (6)
  1. NOVALGIN [Concomitant]
     Indication: GASTROINTESTINAL INFLAMMATION
     Route: 048
     Dates: start: 20111027
  2. AVONEX [Suspect]
     Indication: MULTIPLE SCLEROSIS
     Route: 030
     Dates: start: 20070201
  3. LEVOTHYROXINE SODIUM [Concomitant]
     Indication: HYPOTHYROIDISM
     Route: 048
     Dates: start: 20030101
  4. PANTOPRAZOLE [Concomitant]
     Indication: PROPHYLAXIS
     Route: 048
     Dates: start: 20110801
  5. NOVALGIN [Concomitant]
     Indication: DIARRHOEA
     Route: 048
     Dates: start: 20111027
  6. LYRICA [Concomitant]
     Indication: PARAESTHESIA
     Route: 048
     Dates: start: 20090101

REACTIONS (3)
  - IMPAIRED HEALING [None]
  - METASTASES TO LYMPH NODES [None]
  - TESTICULAR CANCER METASTATIC [None]
